FAERS Safety Report 10602540 (Version 6)
Quarter: 2015Q1

REPORT INFORMATION
  Report Type: Report from Study
  Country: AU (occurrence: AU)
  Receive Date: 20141124
  Receipt Date: 20150205
  Transmission Date: 20150720
  Serious: Yes (Death, Life-Threatening, Disabling, Other)
  Sender: FDA-Public Use
  Company Number: AU-INCYTE CORPORATION-2014IN000584

PATIENT
  Age: 80 Year
  Sex: Female
  Weight: 48 kg

DRUGS (7)
  1. JAKAFI [Suspect]
     Active Substance: RUXOLITINIB
     Dosage: 5 MG, BID
     Route: 048
     Dates: start: 20131205
  2. TARGIN [Concomitant]
     Active Substance: NALOXONE HYDROCHLORIDE\OXYCODONE HYDROCHLORIDE
     Dosage: UNK
  3. PANADOL [Concomitant]
     Active Substance: ACETAMINOPHEN
  4. JAKAFI [Suspect]
     Active Substance: RUXOLITINIB
     Indication: MYELOFIBROSIS
     Dosage: 20 MG, BID
     Route: 048
     Dates: start: 20130926, end: 20130930
  5. HYDROXYUREA. [Concomitant]
     Active Substance: HYDROXYUREA
     Dosage: UNK
     Route: 065
     Dates: start: 20140707
  6. JAKAFI [Suspect]
     Active Substance: RUXOLITINIB
     Dosage: 10 MG, BID
     Route: 048
  7. JAKAFI [Suspect]
     Active Substance: RUXOLITINIB
     Dosage: 5 MG, BID
     Route: 048
     Dates: start: 20141110, end: 20150114

REACTIONS (18)
  - Emotional distress [Recovered/Resolved]
  - Anisocytosis [Unknown]
  - Haemoglobin decreased [Unknown]
  - Acute myeloid leukaemia [Fatal]
  - Monocyte count increased [Unknown]
  - Neutrophil count increased [Unknown]
  - Thrombocytopenia [Recovered/Resolved]
  - Red blood cell count decreased [Unknown]
  - Paraesthesia [Recovering/Resolving]
  - Pruritus [Recovering/Resolving]
  - Lymphocyte count decreased [Unknown]
  - Pain in extremity [Recovering/Resolving]
  - Monocyte count decreased [Unknown]
  - Blast cells present [Unknown]
  - Night sweats [Recovering/Resolving]
  - Hyperhidrosis [Unknown]
  - White blood cell count increased [Unknown]
  - Haematocrit decreased [Unknown]

NARRATIVE: CASE EVENT DATE: 20140707
